FAERS Safety Report 24637221 (Version 1)
Quarter: 2024Q4

REPORT INFORMATION
  Report Type: Spontaneous
  Country: MA (occurrence: MA)
  Receive Date: 20241119
  Receipt Date: 20241119
  Transmission Date: 20250114
  Serious: Yes (Death, Hospitalization, Other)
  Sender: Steriscience PTE
  Company Number: MA-STERISCIENCE B.V.-2024-ST-001907

PATIENT
  Age: 3 Month
  Sex: Male

DRUGS (6)
  1. GANCICLOVIR SODIUM [Suspect]
     Active Substance: GANCICLOVIR SODIUM
     Indication: Pneumonia cytomegaloviral
     Dosage: 5 MILLIGRAM/KILOGRAM, QD, FOR 6 WEEKS
     Route: 042
  2. AMPICILLIN [Suspect]
     Active Substance: AMPICILLIN
     Indication: Antibiotic therapy
     Dosage: UNK
     Route: 065
  3. GENTAMICIN [Suspect]
     Active Substance: GENTAMICIN
     Indication: Antibiotic therapy
     Dosage: UNK
     Route: 065
  4. CEFTRIAXONE [Suspect]
     Active Substance: CEFTRIAXONE
     Indication: Antibiotic therapy
     Dosage: UNK
     Route: 065
  5. IRON PROTEINSUCCINYLATE [Concomitant]
     Indication: Hypochromic anaemia
     Dosage: 6 MILLIGRAM/KILOGRAM, QD
     Route: 065
  6. COTRIMOXAZOLE [Concomitant]
     Active Substance: SULFAMETHOXAZOLE\TRIMETHOPRIM
     Indication: Antifungal prophylaxis
     Dosage: 25 MILLIGRAM/KILOGRAM, QD
     Route: 065

REACTIONS (2)
  - Drug ineffective for unapproved indication [Fatal]
  - Drug ineffective [Unknown]
